FAERS Safety Report 11215640 (Version 1)
Quarter: 2015Q2

REPORT INFORMATION
  Report Type: Spontaneous
  Country: US (occurrence: None)
  Receive Date: 20150623
  Receipt Date: 20150623
  Transmission Date: 20150821
  Serious: No
  Sender: FDA-Public Use
  Company Number: None

PATIENT
  Age: 8 Year
  Sex: Male
  Weight: 27.67 kg

DRUGS (1)
  1. GUANFACINE HCL ER 2MG ACTAVIS PHARMA [Suspect]
     Active Substance: GUANFACINE HYDROCHLORIDE
     Indication: ATTENTION DEFICIT/HYPERACTIVITY DISORDER
     Dosage: 1MG - 1 TAB QD PO
     Route: 048
     Dates: start: 201309, end: 201501

REACTIONS (3)
  - Product substitution issue [None]
  - Mood swings [None]
  - Fatigue [None]

NARRATIVE: CASE EVENT DATE: 20150130
